FAERS Safety Report 7430670-5 (Version None)
Quarter: 2011Q2

REPORT INFORMATION
  Report Type: 
  Country: None (occurrence: None)
  Receive Date: 20110421
  Receipt Date: 20110408
  Transmission Date: 20111010
  Serious: Yes (Other)
  Sender: FDA-Public Use
  Company Number: US-BAYER-2011-031958

PATIENT
  Age: 75 Year
  Sex: Male
  Weight: 102 kg

DRUGS (9)
  1. TIMOLOL [Concomitant]
  2. LYRICA [Concomitant]
  3. FISH OIL [Concomitant]
  4. ZETIA [Concomitant]
  5. FLOMAX [Concomitant]
  6. LIPITOR [Concomitant]
  7. ASPIRIN [Concomitant]
  8. ALEVE (CAPLET) [Suspect]
     Dosage: 220 MG, QD, BOTTLE COUNT 100S
     Dates: start: 20110325
  9. ACIPHEX [Concomitant]

REACTIONS (1)
  - ERECTILE DYSFUNCTION [None]
